FAERS Safety Report 5090195-1 (Version None)
Quarter: 2006Q3

REPORT INFORMATION
  Report Type: 
  Country: None (occurrence: None)
  Receive Date: 20060828
  Receipt Date: 20060824
  Transmission Date: 20061208
  Serious: Yes (Hospitalization)
  Sender: FDA-Public Use
  Company Number: 2004001424

PATIENT
  Age: 47 Year
  Sex: Female
  Weight: 53.7 kg

DRUGS (10)
  1. FLOLAN [Suspect]
     Route: 042
     Dates: start: 19990101
  2. SILDENAFIL CITRATE [Suspect]
     Dosage: 60MG THREE TIMES PER DAY
     Route: 048
     Dates: start: 20040105
  3. MORPHINE [Concomitant]
     Route: 048
  4. HYDROCHLOROTHIAZIDE [Concomitant]
     Route: 048
     Dates: start: 20000101
  5. WELLBUTRIN [Concomitant]
     Route: 048
     Dates: start: 20010101
  6. CLONAZEPAM [Concomitant]
     Route: 048
     Dates: start: 20030101
  7. ZOPICLONE [Concomitant]
     Route: 048
     Dates: start: 20030101
  8. HYDROMORPHONE HCL [Concomitant]
     Route: 048
     Dates: start: 20000101
  9. ACETAMINOPHEN W/ CODEINE [Concomitant]
     Route: 048
     Dates: start: 20031217
  10. SENOKOT [Concomitant]
     Route: 048
     Dates: start: 20031127

REACTIONS (6)
  - DYSPNOEA [None]
  - OEDEMA PERIPHERAL [None]
  - PAIN IN EXTREMITY [None]
  - PAINFUL RESPIRATION [None]
  - PULMONARY HYPERTENSION [None]
  - UPPER RESPIRATORY TRACT INFECTION [None]
